FAERS Safety Report 5017462-1 (Version None)
Quarter: 2006Q2

REPORT INFORMATION
  Report Type: 
  Country: None (occurrence: None)
  Receive Date: 20060414
  Receipt Date: 20060224
  Transmission Date: 20061013
  Serious: No
  Sender: FDA-Public Use
  Company Number: 2006SP000933

PATIENT
  Age: 70 Year
  Sex: Female
  Weight: 79.3795 kg

DRUGS (7)
  1. LUNESTA [Suspect]
     Indication: INSOMNIA
     Dosage: 2 MG, HS; ORAL
     Route: 048
     Dates: start: 20060222
  2. AMBIEN [Concomitant]
  3. DILTIAZEM [Concomitant]
  4. ATORVASTATIN CALCIUM [Concomitant]
  5. DIOVAN HCT [Concomitant]
  6. ALPRAZOLAM [Concomitant]
  7. ZOLOFT [Concomitant]

REACTIONS (1)
  - INSOMNIA [None]
